FAERS Safety Report 5623954-4 (Version None)
Quarter: 2008Q1

REPORT INFORMATION
  Report Type: 
  Country: None (occurrence: None)
  Receive Date: 20080213
  Receipt Date: 20080205
  Transmission Date: 20080703
  Serious: Yes (Death, Hospitalization)
  Sender: FDA-Public Use
  Company Number: TH-SP-2007-03856

PATIENT
  Age: 19 Year
  Sex: Male

DRUGS (3)
  1. MERIEUX INACTIVATED RABIES VACCINE [Suspect]
     Indication: INFECTION PROPHYLAXIS
     Route: 030
  2. MERIEUX INACTIVATED RABIES VACCINE [Suspect]
     Route: 030
  3. PASTEURIZED HUMAN RABIES IMMUNOGLOBULIN [Suspect]
     Indication: INFECTION PROPHYLAXIS
     Dosage: 20 IU/KG IM IN DELTOID REGION
     Route: 050

REACTIONS (9)
  - AGITATION [None]
  - DYSPHAGIA [None]
  - GENERAL PHYSICAL HEALTH DETERIORATION [None]
  - HYDROPHOBIA [None]
  - MUSCULAR WEAKNESS [None]
  - PARAESTHESIA [None]
  - PYREXIA [None]
  - RABIES [None]
  - VACCINATION FAILURE [None]
